FAERS Safety Report 11555403 (Version 2)
Quarter: 2015Q4

REPORT INFORMATION
  Report Type: Spontaneous
  Country: US (occurrence: US)
  Receive Date: 20150925
  Receipt Date: 20151120
  Transmission Date: 20160304
  Serious: Yes (Hospitalization, Disabling)
  Sender: FDA-Public Use
  Company Number: US-ENDO PHARMACEUTICALS INC.-2015-003014

PATIENT
  Age: 43 Year
  Sex: Male
  Weight: 127.12 kg

DRUGS (5)
  1. TESTIM [Suspect]
     Active Substance: TESTOSTERONE
     Indication: ANDROGEN REPLACEMENT THERAPY
     Route: 062
     Dates: start: 201308, end: 201310
  2. CLOMID [Suspect]
     Active Substance: CLOMIPHENE CITRATE
     Indication: HORMONE THERAPY
     Route: 048
     Dates: start: 201310
  3. ANDROGEL [Suspect]
     Active Substance: TESTOSTERONE
     Indication: ANDROGEN REPLACEMENT THERAPY
     Route: 065
     Dates: start: 2006
  4. AXIRON [Suspect]
     Active Substance: TESTOSTERONE
     Indication: ANDROGEN REPLACEMENT THERAPY
     Route: 065
     Dates: start: 20130121, end: 201305
  5. AXIRON [Suspect]
     Active Substance: TESTOSTERONE
     Route: 065
     Dates: start: 20130617, end: 201308

REACTIONS (8)
  - Depression [Not Recovered/Not Resolved]
  - Anxiety [Not Recovered/Not Resolved]
  - Product quality issue [None]
  - Sperm concentration zero [None]
  - Blood testosterone increased [None]
  - Rhabdomyolysis [Unknown]
  - Extra dose administered [None]
  - Ischaemic stroke [Not Recovered/Not Resolved]

NARRATIVE: CASE EVENT DATE: 20140219
